FAERS Safety Report 11875394 (Version 1)
Quarter: 2015Q4

REPORT INFORMATION
  Report Type: Spontaneous
  Country: US (occurrence: US)
  Receive Date: 20151229
  Receipt Date: 20151229
  Transmission Date: 20160305
  Serious: No
  Sender: FDA-Public Use
  Company Number: US-PFIZER INC-2015438023

PATIENT
  Age: 55 Year
  Sex: Female
  Weight: 50 kg

DRUGS (6)
  1. XANAX [Concomitant]
     Active Substance: ALPRAZOLAM
     Dosage: ONE AT NIGHT TIME
  2. NEXIUM [Concomitant]
     Active Substance: ESOMEPRAZOLE MAGNESIUM
     Dosage: UNK UNK, 2X/DAY
  3. HYDROCODONE [Concomitant]
     Active Substance: HYDROCODONE
     Dosage: UNK UNK, 4X/DAY
  4. SPIRIVA [Concomitant]
     Active Substance: TIOTROPIUM BROMIDE MONOHYDRATE
     Indication: DYSPNOEA
  5. NYSTATIN/ZINC OXIDE [Concomitant]
  6. LYRICA [Suspect]
     Active Substance: PREGABALIN
     Indication: NEUROPATHY PERIPHERAL
     Dosage: 50 MG, 1X/DAY

REACTIONS (6)
  - Vaginal infection [Unknown]
  - Condition aggravated [Unknown]
  - Dysstasia [Unknown]
  - Pain [Unknown]
  - Urinary tract infection [Unknown]
  - Fatigue [Unknown]
